FAERS Safety Report 18385035 (Version 4)
Quarter: 2021Q4

REPORT INFORMATION
  Report Type: Report from Study
  Country: CA (occurrence: CA)
  Receive Date: 20201014
  Receipt Date: 20211117
  Transmission Date: 20220303
  Serious: Yes (Other)
  Sender: FDA-Public Use
  Company Number: NVSC2020CA272833

PATIENT
  Age: 69 Year
  Sex: Female

DRUGS (3)
  1. ILARIS [Suspect]
     Active Substance: CANAKINUMAB
     Indication: Muckle-Wells syndrome
     Dosage: 150 MG (FREQUENCY: 8 WEEKS)
     Route: 058
     Dates: start: 20200226
  2. ILARIS [Suspect]
     Active Substance: CANAKINUMAB
     Dosage: UNK
     Route: 065
     Dates: start: 20201020
  3. REACTINE [Concomitant]
     Indication: Product used for unknown indication
     Dosage: UNK
     Route: 065

REACTIONS (6)
  - Retinitis [Unknown]
  - Urticaria chronic [Recovering/Resolving]
  - Headache [Unknown]
  - Diarrhoea [Unknown]
  - Condition aggravated [Unknown]
  - Urticaria [Unknown]

NARRATIVE: CASE EVENT DATE: 20210901
